FAERS Safety Report 4466336-3 (Version None)
Quarter: 2004Q4

REPORT INFORMATION
  Report Type: 
  Country: None (occurrence: None)
  Receive Date: 20041005
  Receipt Date: 20040920
  Transmission Date: 20050328
  Serious: Yes (Hospitalization)
  Sender: FDA-Public Use
  Company Number: NL-GLAXOSMITHKLINE-B0346335A

PATIENT
  Sex: Male
  Weight: 1.6 kg

DRUGS (5)
  1. PAROXETINE HYDROCHLORIDE [Suspect]
     Dosage: 20MG PER DAY
  2. NUBAIN [Suspect]
     Dates: start: 20040629
  3. FOLIC ACID [Concomitant]
     Dosage: 5MG PER DAY
  4. CELESTONE [Concomitant]
     Indication: UTERINE CONTRACTIONS ABNORMAL
     Dosage: 4MGML UNKNOWN
     Dates: start: 20040627, end: 20040628
  5. PRE PAR [Concomitant]
     Indication: UTERINE CONTRACTIONS ABNORMAL

REACTIONS (13)
  - ABNORMAL FAECES [None]
  - BRADYCARDIA [None]
  - BRADYCARDIA NEONATAL [None]
  - DEPRESSED LEVEL OF CONSCIOUSNESS [None]
  - DRUG EXPOSURE DURING PREGNANCY [None]
  - HYPOTONIA NEONATAL [None]
  - NEONATAL DISORDER [None]
  - NEONATAL RESPIRATORY DEPRESSION [None]
  - PALLOR [None]
  - PREMATURE BABY [None]
  - RESTLESSNESS [None]
  - TREMOR [None]
  - TREMOR NEONATAL [None]
